FAERS Safety Report 6170114-7 (Version None)
Quarter: 2009Q2

REPORT INFORMATION
  Report Type: 
  Country: None (occurrence: None)
  Receive Date: 20090428
  Receipt Date: 20090423
  Transmission Date: 20091009
  Serious: Yes (Hospitalization)
  Sender: FDA-Public Use
  Company Number: B0571410A

PATIENT
  Sex: Female

DRUGS (3)
  1. AUGMENTIN '125' [Suspect]
     Indication: NASOPHARYNGITIS
     Route: 048
     Dates: start: 20090210, end: 20090217
  2. LEVOTHYROX [Concomitant]
     Dosage: 1UNIT PER DAY
     Route: 065
  3. FUMAFER [Concomitant]
     Dosage: 1UNIT PER DAY
     Route: 065

REACTIONS (7)
  - GENERAL PHYSICAL HEALTH DETERIORATION [None]
  - OEDEMA [None]
  - PYREXIA [None]
  - RASH [None]
  - RASH MACULO-PAPULAR [None]
  - SKIN LESION [None]
  - TOXIC SKIN ERUPTION [None]
